FAERS Safety Report 18372071 (Version 1)
Quarter: 2020Q4

REPORT INFORMATION
  Report Type: Spontaneous
  Country: US (occurrence: US)
  Receive Date: 20201012
  Receipt Date: 20201012
  Transmission Date: 20210114
  Serious: No
  Sender: FDA-Public Use
  Company Number: US-PFIZER INC-2020390156

PATIENT
  Sex: Male

DRUGS (3)
  1. PEMBROLIZUMAB. [Concomitant]
     Active Substance: PEMBROLIZUMAB
     Dosage: UNK
  2. ENCORAFENIB [Suspect]
     Active Substance: ENCORAFENIB
     Indication: MALIGNANT MELANOMA
     Dosage: UNK UNK, CYCLIC (4 DAYS ON AND 3 DAYS OFF)
  3. BINIMETINIB [Suspect]
     Active Substance: BINIMETINIB
     Indication: MALIGNANT MELANOMA
     Dosage: UNK UNK, CYCLIC (4 DAYS ON AND 3 DAYS OFF)

REACTIONS (4)
  - Product use issue [Unknown]
  - Ear swelling [Unknown]
  - Off label use [Unknown]
  - Arthralgia [Unknown]
